FAERS Safety Report 5019200-5 (Version None)
Quarter: 2006Q2

REPORT INFORMATION
  Report Type: 
  Country: None (occurrence: None)
  Receive Date: 20060606
  Receipt Date: 20060504
  Transmission Date: 20061013
  Serious: Yes (Other)
  Sender: FDA-Public Use
  Company Number: ES-SANOFI-SYNTHELABO-A01200603429

PATIENT
  Age: 40 Year
  Sex: Male

DRUGS (2)
  1. SINTROM [Concomitant]
     Indication: DRUG USE FOR UNKNOWN INDICATION
     Dosage: UNK
     Route: 065
     Dates: end: 20060401
  2. ISCOVER [Suspect]
     Indication: CEREBROVASCULAR ACCIDENT
     Route: 048
     Dates: start: 20060401

REACTIONS (2)
  - JAUNDICE CHOLESTATIC [None]
  - TRANSAMINASES INCREASED [None]
